FAERS Safety Report 21548518 (Version 1)
Quarter: 2022Q4

REPORT INFORMATION
  Report Type: Spontaneous
  Country: PL (occurrence: PL)
  Receive Date: 20221103
  Receipt Date: 20221103
  Transmission Date: 20230113
  Serious: Yes (Hospitalization, Other)
  Sender: FDA-Public Use
  Company Number: PL-Adamed Pharma S.A..-2022-AER-00039

PATIENT
  Age: 64 Year
  Sex: Male
  Weight: 102 kg

DRUGS (10)
  1. INDAPAMIDE [Suspect]
     Active Substance: INDAPAMIDE
     Indication: Product used for unknown indication
     Dosage: UNIT DOSE: 1.5 MG , FREQUENCY TIME : 1 DAY, DURATION : 1639 DAYS
     Dates: start: 2018, end: 20220627
  2. ALLOPURINOL [Suspect]
     Active Substance: ALLOPURINOL
     Indication: Product used for unknown indication
     Dosage: UNIT DOSE: 100 MG , FREQUENCY TIME : 2 DAYS, THERAPY END DATE : NASK
     Dates: start: 20220705
  3. ALLOPURINOL [Suspect]
     Active Substance: ALLOPURINOL
     Dosage: UNIT DOSE: 300 MG , FREQUENCY TIME : 2 DAYS, DURATION : 7 DAYS
     Dates: start: 20220628, end: 20220704
  4. FUROSEMIDE [Suspect]
     Active Substance: FUROSEMIDE
     Indication: Product used for unknown indication
     Dosage: UNIT DOSE:  1 DF, FREQUENCY TIME : 2 DAYS, DURATION : 8 DAYS
     Dates: start: 20220628, end: 20220705
  5. AMLODIPINE\RAMIPRIL [Suspect]
     Active Substance: AMLODIPINE\RAMIPRIL
     Indication: Product used for unknown indication
     Dosage: FOR ACTIVE INGREDIENT RAMIPRIL THE STRENGTH IS 10 MILLIGRAM .FOR ACTIVE INGREDIENT AMLODIPINE BESILA
     Dates: start: 2018, end: 20220627
  6. VITAMIN C [Concomitant]
     Active Substance: ASCORBIC ACID
     Indication: Product used for unknown indication
     Dates: start: 2018
  7. OMEPRAZOLE [Concomitant]
     Active Substance: OMEPRAZOLE
     Indication: Product used for unknown indication
     Dosage: DURATION : 1660 DAYS
     Dates: start: 2018, end: 20220718
  8. NEBIVOLOL [Concomitant]
     Active Substance: NEBIVOLOL
     Indication: Product used for unknown indication
     Dates: start: 2018
  9. MGD019 [Concomitant]
     Indication: Product used for unknown indication
     Dosage: UNIT DOSE: 6 MG/KG , FREQUENCY TIME : 0 TOTAL, DURATION : 1 DAYS
     Dates: start: 20220524, end: 20220524
  10. MGD019 [Concomitant]
     Dosage: UNIT DOSE: 6 MG/KG , FREQUENCY TIME : 0 TOTAL, DURATION : 1 DAYS
     Dates: start: 20220614, end: 20220614

REACTIONS (1)
  - Acute kidney injury [Recovered/Resolved]
